FAERS Safety Report 7711969-1 (Version None)
Quarter: 2011Q3

REPORT INFORMATION
  Report Type: 
  Country: None (occurrence: None)
  Receive Date: 20110826
  Receipt Date: 20110812
  Transmission Date: 20111222
  Serious: Yes (Hospitalization, Other)
  Sender: FDA-Public Use
  Company Number: JP-SHIRE-ALL1-2011-02714

PATIENT

DRUGS (12)
  1. TEGRETOL [Concomitant]
     Indication: PRODUCT USED FOR UNKNOWN INDICATION
     Dosage: UNK UNK, UNKNOWN
     Route: 065
  2. ASPIRIN [Concomitant]
     Indication: PRODUCT USED FOR UNKNOWN INDICATION
     Dosage: UNK UNK, UNKNOWN
     Route: 065
  3. PREDNISOLONE [Concomitant]
     Indication: PRODUCT USED FOR UNKNOWN INDICATION
     Dosage: UNK UNK, UNKNOWN
     Route: 065
  4. CYTOTEC [Concomitant]
     Indication: PRODUCT USED FOR UNKNOWN INDICATION
     Dosage: UNK UNK, UNKNOWN
     Route: 065
  5. METOPROLOL TARTRATE [Concomitant]
     Indication: PRODUCT USED FOR UNKNOWN INDICATION
     Dosage: UNK UNK, UNKNOWN
     Route: 065
  6. TANADOPA [Concomitant]
     Indication: PRODUCT USED FOR UNKNOWN INDICATION
     Dosage: UNK UNK, UNKNOWN
     Route: 065
  7. ASPARA POTASSIUM [Concomitant]
     Indication: PRODUCT USED FOR UNKNOWN INDICATION
     Dosage: UNK UNK, UNKNOWN
     Route: 065
  8. REPLAGAL [Suspect]
     Indication: FABRY'S DISEASE
     Dosage: 0.2 MG/KG, 1X/2WKS
     Route: 041
     Dates: start: 20010101
  9. LANSOPRAZOLE [Concomitant]
     Indication: PRODUCT USED FOR UNKNOWN INDICATION
     Dosage: UNK UNK, UNKNOWN
     Route: 065
  10. VOLTAREN [Concomitant]
     Indication: PRODUCT USED FOR UNKNOWN INDICATION
     Dosage: UNK UNK, UNKNOWN
     Route: 065
  11. SELBEX [Concomitant]
     Indication: PRODUCT USED FOR UNKNOWN INDICATION
     Dosage: UNK UNK, UNKNOWN
     Route: 065
  12. TRICHLORMETHIAZIDE [Concomitant]
     Indication: PRODUCT USED FOR UNKNOWN INDICATION
     Dosage: UNK UNK, UNKNOWN
     Route: 065

REACTIONS (22)
  - LEFT VENTRICULAR HYPERTROPHY [None]
  - HYPOPROTEINAEMIA [None]
  - PROTEIN URINE PRESENT [None]
  - HYPOAESTHESIA ORAL [None]
  - HEADACHE [None]
  - CEREBRAL INFARCTION [None]
  - OEDEMA PERIPHERAL [None]
  - BRONCHITIS CHRONIC [None]
  - AMNESIA [None]
  - UPPER RESPIRATORY TRACT INFLAMMATION [None]
  - ASPARTATE AMINOTRANSFERASE INCREASED [None]
  - HYPERTROPHIC CARDIOMYOPATHY [None]
  - PYREXIA [None]
  - PNEUMONIA ASPIRATION [None]
  - WEIGHT DECREASED [None]
  - DRUG SPECIFIC ANTIBODY PRESENT [None]
  - FURUNCLE [None]
  - WHITE BLOOD CELL COUNT INCREASED [None]
  - HYPOAESTHESIA [None]
  - CHILLS [None]
  - HYPOALBUMINAEMIA [None]
  - BLOOD LACTATE DEHYDROGENASE INCREASED [None]
